FAERS Safety Report 7529971-1 (Version None)
Quarter: 2011Q2

REPORT INFORMATION
  Report Type: 
  Country: None (occurrence: None)
  Receive Date: 20110527
  Receipt Date: 20110518
  Transmission Date: 20111010
  Serious: Yes (Hospitalization)
  Sender: FDA-Public Use
  Company Number: 2011SP023112

PATIENT
  Sex: Female

DRUGS (2)
  1. INTERFERON [Suspect]
     Indication: PRODUCT USED FOR UNKNOWN INDICATION
  2. REBETOL [Suspect]
     Indication: HEPATITIS C

REACTIONS (1)
  - ARTHRITIS BACTERIAL [None]
